FAERS Safety Report 6449145-5 (Version None)
Quarter: 2009Q4

REPORT INFORMATION
  Report Type: 
  Country: None (occurrence: None)
  Receive Date: 20091116
  Receipt Date: 20091103
  Transmission Date: 20100525
  Serious: Yes (Other)
  Sender: FDA-Public Use
  Company Number: 1000010007

PATIENT
  Age: 40 Year
  Sex: Female

DRUGS (3)
  1. LEXAPRO [Suspect]
     Dosage: 10 MG (10 MG, 1 IN 1 D), ORAL
     Route: 048
  2. LEXAPRO [Suspect]
     Dosage: 5 MG (5 MG, 1 IN 1 D), ORAL
     Route: 048
  3. CLOZARIL [Concomitant]

REACTIONS (1)
  - DRUG LEVEL INCREASED [None]
